FAERS Safety Report 8017419-2 (Version None)
Quarter: 2012Q1

REPORT INFORMATION
  Report Type: 
  Country: None (occurrence: None)
  Receive Date: 20120102
  Receipt Date: 20111216
  Transmission Date: 20120608
  Serious: Yes (Hospitalization, Other)
  Sender: FDA-Public Use
  Company Number: PHHY2011JP108336

PATIENT
  Sex: Female
  Weight: 2.5 kg

DRUGS (2)
  1. CORTICOSTEROIDS [Concomitant]
     Dosage: UNK UKN, UNK
  2. CYCLOSPORINE [Suspect]
     Indication: LIVER TRANSPLANT
     Dosage: 2 MG/KG/DAY
     Route: 042

REACTIONS (11)
  - ANURIA [None]
  - SERUM FERRITIN INCREASED [None]
  - GAMMA-GLUTAMYLTRANSFERASE INCREASED [None]
  - NEPHROPATHY TOXIC [None]
  - BLOOD ALKALINE PHOSPHATASE INCREASED [None]
  - ASPARTATE AMINOTRANSFERASE INCREASED [None]
  - BLOOD BILIRUBIN INCREASED [None]
  - BLOOD LACTATE DEHYDROGENASE INCREASED [None]
  - PLATELET COUNT DECREASED [None]
  - PROTEIN TOTAL INCREASED [None]
  - WHITE BLOOD CELL COUNT INCREASED [None]
